FAERS Safety Report 8507527-1 (Version None)
Quarter: 2012Q3

REPORT INFORMATION
  Report Type: 
  Country: None (occurrence: None)
  Receive Date: 20120713
  Receipt Date: 20120627
  Transmission Date: 20120928
  Serious: Yes (Death)
  Sender: FDA-Public Use
  Company Number: US-009507513-2012SP026072

PATIENT

DRUGS (2)
  1. DULERA [Suspect]
     Indication: ASTHMA
     Dosage: 2 DF, BID
     Route: 055
  2. SINGULAIR [Concomitant]

REACTIONS (2)
  - CHEST DISCOMFORT [None]
  - EXPIRED DRUG ADMINISTERED [None]
